FAERS Safety Report 7666493 (Version 3)
Quarter: 2012Q4

REPORT INFORMATION
  Report Type: 
  Country: JP (occurrence: JP)
  Receive Date: 20101112
  Receipt Date: 20120903
  Transmission Date: 20130627
  Serious: Yes (Other)
  Sender: FDA-Public Use
  Company Number: PHHY2010JP75033

PATIENT
  Age: 68 Year
  Sex: Female
  Weight: 62 kg

DRUGS (11)
  1. GLIVEC [Suspect]
     Indication: CHRONIC MYELOID LEUKAEMIA
     Dosage: 300 mg, daily
     Route: 048
     Dates: start: 20090207, end: 20101003
  2. GLIVEC [Suspect]
     Dosage: 200 mg daily
     Route: 048
     Dates: start: 20101018, end: 20101024
  3. GLIVEC [Suspect]
     Dosage: 300 mg, UNK
     Route: 048
     Dates: start: 20101025, end: 20101101
  4. GLIVEC [Suspect]
     Dosage: 200 mg daily
     Route: 048
     Dates: start: 20101115, end: 20101122
  5. ACEMAIL [Concomitant]
     Indication: HYPERTENSION
     Route: 048
     Dates: start: 20090406
  6. LENDORMIN [Concomitant]
     Indication: INSOMNIA
     Route: 048
     Dates: start: 20090326
  7. LASIX [Concomitant]
     Route: 048
     Dates: start: 20090407
  8. OMEPRAL [Concomitant]
     Indication: PROPHYLAXIS AGAINST GASTROINTESTINAL ULCER
     Route: 048
     Dates: start: 20090208
  9. MYONAL [Concomitant]
     Indication: CERVICOBRACHIAL SYNDROME
     Dates: start: 20090204
  10. MUCOSTA [Concomitant]
     Indication: PROPHYLAXIS AGAINST GASTROINTESTINAL ULCER
     Dates: start: 20090406
  11. ADJUST-A [Concomitant]
     Dates: start: 20090406

REACTIONS (5)
  - Electrocardiogram QT prolonged [Recovering/Resolving]
  - Dizziness [Recovered/Resolved]
  - Decreased appetite [Recovered/Resolved]
  - Oedema [Not Recovered/Not Resolved]
  - Constipation [Not Recovered/Not Resolved]
